FAERS Safety Report 19354189 (Version 1)
Quarter: 2021Q2

REPORT INFORMATION
  Report Type: Spontaneous
  Country: GB (occurrence: GB)
  Receive Date: 20210602
  Receipt Date: 20210602
  Transmission Date: 20210717
  Serious: Yes (Other)
  Sender: FDA-Public Use
  Company Number: GB-AUROBINDO-08-AUR-01715

PATIENT
  Age: 82 Year
  Sex: Female

DRUGS (4)
  1. LANSOPRAZOLE. [Concomitant]
     Active Substance: LANSOPRAZOLE
     Indication: TRANSIENT ISCHAEMIC ATTACK
     Dosage: UNK UNK,UNK,
     Route: 065
  2. SIMVASTATIN. [Suspect]
     Active Substance: SIMVASTATIN
     Indication: TRANSIENT ISCHAEMIC ATTACK
     Dosage: UNK UNK,UNK,
     Route: 065
  3. PRAVASTATIN. [Suspect]
     Active Substance: PRAVASTATIN
     Indication: PRODUCT USED FOR UNKNOWN INDICATION
     Dosage: UNK UNK,UNK,
     Route: 065
  4. ASPIRIN. [Concomitant]
     Active Substance: ASPIRIN
     Indication: TRANSIENT ISCHAEMIC ATTACK
     Dosage: UNK UNK,UNK,
     Route: 065

REACTIONS (1)
  - Subacute cutaneous lupus erythematosus [Recovering/Resolving]
